FAERS Safety Report 4986715-5 (Version None)
Quarter: 2006Q2

REPORT INFORMATION
  Report Type: 
  Country: None (occurrence: None)
  Receive Date: 20060428
  Receipt Date: 20051004
  Transmission Date: 20061013
  Serious: Yes (Hospitalization, Disabling)
  Sender: FDA-Public Use
  Company Number: US-MERCK-0510USA03811

PATIENT
  Age: 57 Year
  Sex: Female
  Weight: 61 kg

DRUGS (1)
  1. VIOXX [Suspect]
     Indication: ARTHRITIS
     Route: 048
     Dates: start: 20000101, end: 20020101

REACTIONS (6)
  - CARDIOVASCULAR DISORDER [None]
  - ESSENTIAL HYPERTENSION [None]
  - IMPAIRED WORK ABILITY [None]
  - INTRACARDIAC THROMBUS [None]
  - NERVE INJURY [None]
  - THROMBOSIS [None]
